FAERS Safety Report 12346621 (Version 1)
Quarter: 2016Q2

REPORT INFORMATION
  Report Type: Spontaneous
  Country: US (occurrence: None)
  Receive Date: 20160506
  Receipt Date: 20160506
  Transmission Date: 20160815
  Serious: Yes (Life-Threatening, Hospitalization, Disabling)
  Sender: FDA-Public Use
  Company Number: None

PATIENT
  Sex: Female

DRUGS (1)
  1. OMNIPEN [Suspect]
     Active Substance: AMPICILLIN

REACTIONS (3)
  - Blood pressure increased [None]
  - Loss of consciousness [None]
  - Spinal disorder [None]
